FAERS Safety Report 12072392 (Version 2)
Quarter: 2016Q2

REPORT INFORMATION
  Report Type: Spontaneous
  Country: GR (occurrence: GR)
  Receive Date: 20160212
  Receipt Date: 20160512
  Transmission Date: 20160815
  Serious: Yes (Hospitalization, Other)
  Sender: FDA-Public Use
  Company Number: GR-009507513-1602GRC005579

PATIENT
  Sex: Male
  Weight: 75 kg

DRUGS (6)
  1. SOLOSA [Concomitant]
     Active Substance: GLIMEPIRIDE
     Dosage: 4 MG, QD (PRIOR TO LUNCH)
  2. JANUMET [Suspect]
     Active Substance: METFORMIN HYDROCHLORIDE\SITAGLIPTIN PHOSPHATE
     Indication: TYPE 2 DIABETES MELLITUS
     Dosage: 1 TABLET (50/1000 MG) X 2 DAILY
     Route: 048
  3. EXFORGE [Concomitant]
     Active Substance: AMLODIPINE BESYLATE\VALSARTAN
     Dosage: 1 DF (10/160 MG), BID
  4. SALOSPIR [Concomitant]
     Active Substance: ASPIRIN
     Dosage: 1 X 1
  5. MAGUROL [Concomitant]
     Dosage: 40 MG, QD
  6. CRESTOR [Concomitant]
     Active Substance: ROSUVASTATIN CALCIUM
     Dosage: 1X1

REACTIONS (1)
  - Arrhythmia [Recovering/Resolving]
